FAERS Safety Report 16754988 (Version 1)
Quarter: 2019Q3

REPORT INFORMATION
  Report Type: Report from Study
  Country: IT (occurrence: IT)
  Receive Date: 20190829
  Receipt Date: 20190829
  Transmission Date: 20191005
  Serious: Yes (Hospitalization)
  Sender: FDA-Public Use
  Company Number: IT-CELGENEUS-ITA-20190711398

PATIENT
  Age: 70 Year
  Sex: Male
  Weight: 103 kg

DRUGS (3)
  1. PANTOPRAZOL [Concomitant]
     Active Substance: PANTOPRAZOLE SODIUM
     Indication: PROPHYLAXIS
     Dosage: 20 MILLIGRAM
     Route: 048
     Dates: start: 20190707
  2. GEMCITABINE ACCORD [Suspect]
     Active Substance: GEMCITABINE HYDROCHLORIDE
     Indication: MALIGNANT NEOPLASM OF UNKNOWN PRIMARY SITE
     Dosage: 285.7143 MILLIGRAM/SQ. METER
     Route: 041
     Dates: start: 20190706, end: 20190717
  3. ABRAXANE [Suspect]
     Active Substance: PACLITAXEL
     Indication: MALIGNANT NEOPLASM OF UNKNOWN PRIMARY SITE
     Dosage: 35.7143 MILLIGRAM/SQ. METER
     Route: 041
     Dates: start: 20190706, end: 20190717

REACTIONS (1)
  - Intestinal perforation [Recovered/Resolved]

NARRATIVE: CASE EVENT DATE: 20190720
